FAERS Safety Report 8154429-9 (Version None)
Quarter: 2012Q1

REPORT INFORMATION
  Report Type: 
  Country: None (occurrence: None)
  Receive Date: 20120221
  Receipt Date: 20120209
  Transmission Date: 20120608
  Serious: Yes (Death, Life-Threatening, Hospitalization, Other)
  Sender: FDA-Public Use
  Company Number: US-MYLANLABS-2012S1003502

PATIENT
  Sex: Female

DRUGS (21)
  1. CODEINE SULFATE [Concomitant]
  2. HYDRALAZINE HCL [Concomitant]
  3. METFORMIN HCL [Concomitant]
  4. MINOCYCLINE HCL [Concomitant]
  5. VENTOLIN [Concomitant]
  6. DIGOXIN [Suspect]
     Indication: CARDIAC FAILURE CONGESTIVE
     Route: 048
     Dates: start: 20070103, end: 20071001
  7. BENZONATATE [Concomitant]
  8. LISINOPRIL [Concomitant]
  9. NITROGLYCERIN [Concomitant]
  10. DIABETA [Concomitant]
  11. ASPIRIN [Concomitant]
  12. AZITHROMYCIN [Concomitant]
  13. MILRINONE [Concomitant]
  14. TETRACYCLINE [Concomitant]
  15. CLARITIN /00917501/ [Concomitant]
  16. NASALIDE [Concomitant]
  17. SODIUM CHLORIDE [Concomitant]
  18. ALBUMIN (HUMAN) [Concomitant]
  19. GLYBURIDE [Concomitant]
  20. ALDACTONE [Concomitant]
  21. FUROSEMIDE [Concomitant]

REACTIONS (53)
  - ASTHENIA [None]
  - HYPOGLYCAEMIA [None]
  - DEHYDRATION [None]
  - DRUG LEVEL ABOVE THERAPEUTIC [None]
  - CARDIAC DISORDER [None]
  - CARDIAC VALVE DISEASE [None]
  - DYSPNOEA [None]
  - JUGULAR VEIN DISTENSION [None]
  - VOCAL CORD DISORDER [None]
  - GAIT DISTURBANCE [None]
  - EMOTIONAL DISTRESS [None]
  - INJURY [None]
  - PLEURAL EFFUSION [None]
  - NEUROPATHY PERIPHERAL [None]
  - WHEEZING [None]
  - BREATH SOUNDS ABNORMAL [None]
  - POOR QUALITY DRUG ADMINISTERED [None]
  - ILL-DEFINED DISORDER [None]
  - RENAL FAILURE [None]
  - PAIN [None]
  - GENERAL PHYSICAL HEALTH DETERIORATION [None]
  - ECHOCARDIOGRAM ABNORMAL [None]
  - CARDIAC MURMUR [None]
  - ELECTROCARDIOGRAM ABNORMAL [None]
  - CEREBROVASCULAR ACCIDENT [None]
  - CARDIAC FAILURE CONGESTIVE [None]
  - COUGH [None]
  - INFECTION [None]
  - CHEST X-RAY ABNORMAL [None]
  - DIABETES MELLITUS [None]
  - RESPIRATORY FAILURE [None]
  - CARDIAC ARREST [None]
  - DEATH [None]
  - ECONOMIC PROBLEM [None]
  - CORONARY ARTERY DISEASE [None]
  - HYPONATRAEMIA [None]
  - ORTHOPNOEA [None]
  - OEDEMA PERIPHERAL [None]
  - LEFT VENTRICULAR DYSFUNCTION [None]
  - RALES [None]
  - LABORATORY TEST ABNORMAL [None]
  - PHYSICAL EXAMINATION ABNORMAL [None]
  - TRICUSPID VALVE INCOMPETENCE [None]
  - CARDIOMEGALY [None]
  - HYPERTENSION [None]
  - CHOKING [None]
  - GENERAL PHYSICAL CONDITION ABNORMAL [None]
  - HYPERKALAEMIA [None]
  - RHONCHI [None]
  - SPEECH DISORDER [None]
  - MENTAL DISORDER [None]
  - MITRAL VALVE INCOMPETENCE [None]
  - DIABETIC NEUROPATHY [None]
